FAERS Safety Report 9335371 (Version 3)
Quarter: 2013Q4

REPORT INFORMATION
  Report Type: Spontaneous
  Country: BR (occurrence: BR)
  Receive Date: 20130606
  Receipt Date: 20131015
  Transmission Date: 20140711
  Serious: Yes (Hospitalization)
  Sender: FDA-Public Use
  Company Number: BR-BIOGENIDEC-2013BI049069

PATIENT
  Sex: Male

DRUGS (1)
  1. TYSABRI [Suspect]
     Indication: MATERNAL EXPOSURE TIMING UNSPECIFIED
     Route: 064
     Dates: start: 20110521, end: 20120905

REACTIONS (4)
  - Respiratory failure [Recovered/Resolved]
  - Asthenia [Recovered/Resolved]
  - Convulsion [Recovered/Resolved]
  - Infection [Recovered/Resolved]
